FAERS Safety Report 7913177-8 (Version None)
Quarter: 2011Q4

REPORT INFORMATION
  Report Type: 
  Country: None (occurrence: None)
  Receive Date: 20111114
  Receipt Date: 20111102
  Transmission Date: 20120403
  Serious: Yes (Other)
  Sender: FDA-Public Use
  Company Number: JP-PFIZER INC-2011264384

PATIENT
  Age: 59 Year
  Sex: Male

DRUGS (6)
  1. CELECOXIB [Suspect]
     Indication: OSTEOARTHRITIS
     Dosage: 100 MG, 2X/DAY
     Route: 048
     Dates: start: 20110330
  2. MINIPLANOR [Concomitant]
     Dosage: UNK
     Dates: start: 20110414, end: 20110902
  3. PRORENAL [Concomitant]
     Dosage: UNK
     Dates: start: 20110407
  4. IRSOGLADINE MALEATE [Concomitant]
     Dosage: UNK
     Dates: start: 20110330
  5. YOUCOBAL [Concomitant]
     Dosage: UNK
     Dates: start: 20110330
  6. POTASSIUM CITRATE/SODIUM CITRATE [Concomitant]
     Dosage: UNK
     Dates: start: 20110414

REACTIONS (1)
  - LUMBAR SPINAL STENOSIS [None]
